FAERS Safety Report 23882550 (Version 1)
Quarter: 2024Q2

REPORT INFORMATION
  Report Type: Spontaneous
  Country: US (occurrence: US)
  Receive Date: 20240522
  Receipt Date: 20240522
  Transmission Date: 20240715
  Serious: Yes (Other)
  Sender: FDA-Public Use
  Company Number: US-ELI_LILLY_AND_COMPANY-US202405006111

PATIENT
  Age: 68 Year
  Sex: Male

DRUGS (2)
  1. RETEVMO [Suspect]
     Active Substance: SELPERCATINIB
     Indication: Neoplasm malignant
     Dosage: UNK UNK, UNKNOWN
     Route: 065
     Dates: start: 202305, end: 20240409
  2. RETEVMO [Suspect]
     Active Substance: SELPERCATINIB
     Dosage: 80 MG, OTHER (EVERY OTHER DAY)
     Route: 065
     Dates: end: 20240409

REACTIONS (2)
  - Malignant neoplasm progression [Unknown]
  - Drug intolerance [Unknown]

NARRATIVE: CASE EVENT DATE: 20240404
